FAERS Safety Report 15441452 (Version 1)
Quarter: 2018Q3

REPORT INFORMATION
  Report Type: Spontaneous
  Country: US (occurrence: US)
  Receive Date: 20180928
  Receipt Date: 20180928
  Transmission Date: 20181010
  Serious: Yes (Other)
  Sender: FDA-Public Use
  Company Number: US-COOPERSURGICAL, INC.-US-2018CPS033171

PATIENT
  Sex: Male

DRUGS (1)
  1. PARAGARD T 380A [Suspect]
     Active Substance: COPPER
     Indication: CONTRACEPTION

REACTIONS (2)
  - Penis injury [Unknown]
  - Sensation of foreign body [Recovered/Resolved]

NARRATIVE: CASE EVENT DATE: 201803
